FAERS Safety Report 9692003 (Version 2)
Quarter: 2014Q1

REPORT INFORMATION
  Report Type: Report from Study
  Country: US (occurrence: US)
  Receive Date: 20131118
  Receipt Date: 20140107
  Transmission Date: 20141002
  Serious: Yes (Hospitalization, Other)
  Sender: FDA-Public Use
  Company Number: US-BIOGENIDEC-2013BI109517

PATIENT
  Age: 45 Year
  Sex: Female
  Weight: 88 kg

DRUGS (22)
  1. TYSABRI [Suspect]
     Indication: RELAPSING-REMITTING MULTIPLE SCLEROSIS
     Route: 042
     Dates: start: 20130206
  2. DIAZEPAM [Concomitant]
     Indication: INSOMNIA
     Dates: start: 201103
  3. COUMADIN [Concomitant]
     Indication: ANTICOAGULANT THERAPY
  4. GABAPENTIN [Concomitant]
     Indication: TRIGEMINAL NEURALGIA
     Dates: start: 20130717
  5. PROVIGIL [Concomitant]
     Indication: FATIGUE
     Dates: start: 20130716
  6. TOPAMAX [Concomitant]
     Indication: PAIN
     Dates: start: 20120705
  7. PRISTIQ ER [Concomitant]
     Indication: DEPRESSION
     Dates: start: 201103
  8. ALPRAZOLAM [Concomitant]
     Indication: ANXIETY
     Dates: start: 20130205
  9. BUTAL PLUS TYLENOL PLUS CAFFEINE [Concomitant]
     Indication: HEADACHE
  10. TETANUS-DIPHTHERIA-ACELLULAR PERTUSSIS VACCINE [Concomitant]
     Indication: IMMUNISATION
     Route: 030
     Dates: start: 20131024, end: 20131024
  11. INFLUENZA VACCINE [Concomitant]
     Indication: IMMUNISATION
     Route: 030
     Dates: start: 20131024, end: 20131024
  12. ONDANSETRON [Concomitant]
     Indication: NAUSEA
     Route: 048
     Dates: start: 20131021, end: 20131024
  13. ONDANSETRON [Concomitant]
     Indication: VOMITING
     Route: 048
     Dates: start: 20131021, end: 20131024
  14. METHYLPREDNISOLONE SODIUM SUCCINATE [Concomitant]
     Indication: ASTHENIA
     Route: 042
     Dates: start: 20131021, end: 20131021
  15. METHYLPREDNISOLONE SODIUM SUCCINATE [Concomitant]
     Indication: ASTHENIA
     Route: 042
     Dates: start: 20131022, end: 20131023
  16. MAGNESIUM HYDROXIDE SUSPENSION [Concomitant]
     Indication: CONSTIPATION
     Route: 048
     Dates: start: 20131021, end: 20131024
  17. SENNOSIDES DOCUSATE [Concomitant]
     Route: 048
     Dates: start: 20131023, end: 20131023
  18. OMEPRAZOLE [Concomitant]
     Dates: start: 20131023, end: 20131024
  19. MEPERIDINE HYDROCHLORIDE [Concomitant]
     Indication: HEADACHE
     Route: 042
     Dates: start: 20131021, end: 20131021
  20. MEPERIDINE HYDROCHLORIDE [Concomitant]
     Indication: PAIN
     Route: 042
     Dates: start: 20131021, end: 20131021
  21. MEPERIDINE HYDROCHLORIDE [Concomitant]
     Indication: HEADACHE
     Route: 042
     Dates: start: 20131021, end: 20131024
  22. MEPERIDINE HYDROCHLORIDE [Concomitant]
     Indication: PAIN
     Route: 042
     Dates: start: 20131021, end: 20131024

REACTIONS (3)
  - Unresponsive to stimuli [Recovered/Resolved]
  - Bronchial obstruction [Recovered/Resolved]
  - Hypotension [Recovered/Resolved]
